FAERS Safety Report 12775870 (Version 3)
Quarter: 2019Q1

REPORT INFORMATION
  Report Type: Report from Study
  Country: CO (occurrence: CO)
  Receive Date: 20160923
  Receipt Date: 20190103
  Transmission Date: 20190417
  Serious: Yes (Hospitalization)
  Sender: FDA-Public Use
  Company Number: CO-ASTELLAS-2016US037051

PATIENT
  Age: 2 Year
  Sex: Male
  Weight: 20 kg

DRUGS (4)
  1. TACROLIMUS. [Suspect]
     Active Substance: TACROLIMUS
     Route: 048
  2. TACROLIMUS. [Suspect]
     Active Substance: TACROLIMUS
     Indication: LIVER TRANSPLANT
     Route: 048
     Dates: start: 20140513, end: 20160301
  3. TACROLIMUS. [Suspect]
     Active Substance: TACROLIMUS
     Dosage: 1 MG, EVERY OTHER DAY (48 HOURS)
     Route: 048
     Dates: start: 20160302, end: 201604
  4. TACROLIMUS. [Suspect]
     Active Substance: TACROLIMUS
     Route: 048

REACTIONS (8)
  - Gamma-glutamyltransferase abnormal [Recovering/Resolving]
  - Liver transplant rejection [Recovering/Resolving]
  - Off label use [Unknown]
  - Toxicity to various agents [Recovered/Resolved with Sequelae]
  - Laboratory test abnormal [Recovering/Resolving]
  - Stomatitis [Recovered/Resolved with Sequelae]
  - Immunosuppression [Unknown]
  - Inappropriate schedule of product administration [Unknown]

NARRATIVE: CASE EVENT DATE: 20160301
